FAERS Safety Report 21644991 (Version 1)
Quarter: 2022Q4

REPORT INFORMATION
  Report Type: Report from Study
  Country: US (occurrence: US)
  Receive Date: 20221125
  Receipt Date: 20221125
  Transmission Date: 20230112
  Serious: No
  Sender: FDA-Public Use
  Company Number: US-ABBVIE-4173577

PATIENT
  Age: 38 Year
  Sex: Female

DRUGS (3)
  1. ORIAHNN [Suspect]
     Active Substance: ELAGOLIX SODIUM\ESTRADIOL\NORETHINDRONE
     Indication: Product used for unknown indication
     Route: 048
     Dates: start: 202210
  2. ORIAHNN [Suspect]
     Active Substance: ELAGOLIX SODIUM\ESTRADIOL\NORETHINDRONE
     Indication: Product used for unknown indication
     Route: 048
     Dates: start: 202210
  3. Pfizer/BioNTech [Concomitant]
     Indication: COVID-19 immunisation
     Dosage: 1 IN 1 ONES
     Route: 030

REACTIONS (5)
  - Nausea [Not Recovered/Not Resolved]
  - Irritability [Unknown]
  - Fatigue [Not Recovered/Not Resolved]
  - Abnormal uterine bleeding [Unknown]
  - Headache [Not Recovered/Not Resolved]

NARRATIVE: CASE EVENT DATE: 20221001
